FAERS Safety Report 7811601-2 (Version None)
Quarter: 2011Q4

REPORT INFORMATION
  Report Type: 
  Country: None (occurrence: None)
  Receive Date: 20111011
  Receipt Date: 20110927
  Transmission Date: 20120403
  Serious: Yes (Other)
  Sender: FDA-Public Use
  Company Number: USA/USA/11/0021363

PATIENT
  Age: 70 Year
  Sex: Female

DRUGS (2)
  1. KENALOG [Suspect]
     Indication: PSORIASIS
     Dosage: ONCE WEEKLY AS NEEDED, TOPICAL
     Route: 061
  2. SCYTERA (COAL TAR) FOAM 2% (COAL TAR) [Suspect]
     Indication: PSORIASIS
     Dosage: APPLIED ONCE WEEKLY AS NEEDED, TOPICAL
     Route: 061
     Dates: start: 20110201

REACTIONS (1)
  - GLAUCOMA [None]
